FAERS Safety Report 4615383-7 (Version None)
Quarter: 2005Q1

REPORT INFORMATION
  Report Type: 
  Country: None (occurrence: None)
  Receive Date: 20050317
  Receipt Date: 20050307
  Transmission Date: 20050727
  Serious: Yes (Hospitalization)
  Sender: FDA-Public Use
  Company Number: 2005042823

PATIENT
  Age: 67 Year
  Sex: Male
  Weight: 60 kg

DRUGS (10)
  1. SOLU-MEDROL [Suspect]
     Indication: ILL-DEFINED DISORDER
     Dosage: 240 MG (80 MG, 3 IN 1 D) , INTRAVENOUS
     Route: 042
     Dates: start: 20041230, end: 20050118
  2. FLUCONAZOLE [Suspect]
     Indication: ILL-DEFINED DISORDER
     Dosage: 400 MG (1 IN 1 D), INTRAVENOUS
     Route: 042
     Dates: start: 20050107, end: 20050113
  3. AMIKACIN [Suspect]
     Indication: ILL-DEFINED DISORDER
     Dosage: INTRAVENOUS
     Route: 042
     Dates: start: 20050107, end: 20050113
  4. CEFOTAXIME SODIUM [Suspect]
     Indication: ILL-DEFINED DISORDER
     Dosage: INTRAVENOUS
     Route: 042
     Dates: start: 20041230, end: 20050127
  5. ORNIDAZOLE (ORNIDAZOLE) [Suspect]
     Indication: ILL-DEFINED DISORDER
     Dosage: 1 GRAM (1 GRAM, 1 IN 1 D), INTRAVENOUS
     Route: 042
     Dates: start: 20041230, end: 20050116
  6. VANCOMYCIN HCL [Suspect]
     Indication: ILL-DEFINED DISORDER
     Dosage: 3 GRAM (1 GRAM, 3  IN 1 D), INTRAVENOUS
     Route: 042
     Dates: start: 20041230, end: 20050112
  7. CLONAZEPAM [Concomitant]
  8. INSULIN HUMAN (INSULIN HUMAN) [Concomitant]
  9. MIDAZOLAM HCL [Concomitant]
  10. FENTANYL CITRATE [Concomitant]

REACTIONS (1)
  - THROMBOCYTOPENIA [None]
